FAERS Safety Report 19996823 (Version 2)
Quarter: 2021Q4

REPORT INFORMATION
  Report Type: Report from Study
  Country: PA (occurrence: PA)
  Receive Date: 20211025
  Receipt Date: 20211129
  Transmission Date: 20220303
  Serious: Yes (Hospitalization, Other)
  Sender: FDA-Public Use
  Company Number: PA-002147023-NVSC2020PA317113

PATIENT

DRUGS (2)
  1. RUXOLITINIB [Suspect]
     Active Substance: RUXOLITINIB
     Indication: Polycythaemia vera
     Dosage: 30 MG, BID
     Route: 048
     Dates: start: 202008, end: 202102
  2. HYDROXYUREA [Concomitant]
     Active Substance: HYDROXYUREA
     Indication: Palliative care
     Dosage: UNK
     Route: 065

REACTIONS (9)
  - Accident [Unknown]
  - SARS-CoV-2 test positive [Recovered/Resolved]
  - Haemoglobin increased [Recovering/Resolving]
  - Haemoglobin decreased [Unknown]
  - Platelet count increased [Unknown]
  - Bone disorder [Recovered/Resolved]
  - Hand fracture [Unknown]
  - Product use issue [Unknown]
  - Haemoglobin abnormal [Unknown]

NARRATIVE: CASE EVENT DATE: 20200801
